FAERS Safety Report 8422754-X (Version None)
Quarter: 2012Q2

REPORT INFORMATION
  Report Type: 
  Country: None (occurrence: None)
  Receive Date: 20120608
  Receipt Date: 20120605
  Transmission Date: 20120825
  Serious: Yes (Life-Threatening, Hospitalization)
  Sender: FDA-Public Use
  Company Number: PL-NOVOPROD-343565

PATIENT
  Age: 65 Year
  Sex: Male
  Weight: 95 kg

DRUGS (10)
  1. VICTOZA [Suspect]
     Indication: TYPE 2 DIABETES MELLITUS
     Dosage: 0.6 MG, QD
     Route: 058
     Dates: start: 20110308, end: 20110411
  2. ONDANSETRON [Concomitant]
     Indication: PROPHYLAXIS
     Dosage: 16 MG, QD
     Dates: start: 20120111
  3. FORMOTEROL FUMARATE [Concomitant]
     Indication: CHRONIC OBSTRUCTIVE PULMONARY DISEASE
     Dosage: 24 A?G, QD
     Dates: start: 20111220
  4. DICLOFENAC SODIUM [Concomitant]
     Indication: LUNG ADENOCARCINOMA
     Dosage: 75 MG, QD
     Dates: start: 20111220
  5. VICTOZA [Suspect]
     Dosage: 1.8 MG, QD
     Route: 058
     Dates: start: 20110419, end: 20120203
  6. FLUTICASONE FUROATE [Concomitant]
     Indication: CHRONIC OBSTRUCTIVE PULMONARY DISEASE
     Dosage: 1000 A?G, QID
     Dates: start: 20111220, end: 20120108
  7. VICTOZA [Suspect]
     Dosage: 1.2 MG, QD
     Route: 058
     Dates: start: 20110412, end: 20110418
  8. TIOTROPIUM [Concomitant]
     Indication: CHRONIC OBSTRUCTIVE PULMONARY DISEASE
     Dosage: 18 A?G, QD
     Dates: start: 20111220
  9. BUDESONIDE [Concomitant]
     Indication: CHRONIC OBSTRUCTIVE PULMONARY DISEASE
     Dosage: 800 A?G, QD
     Dates: start: 20120109
  10. THEOPHYLLINE [Concomitant]
     Indication: CHRONIC OBSTRUCTIVE PULMONARY DISEASE
     Dosage: 300 MG, QD
     Dates: start: 20111220

REACTIONS (1)
  - LUNG ADENOCARCINOMA [None]
